FAERS Safety Report 10213132 (Version 1)
Quarter: 2014Q2

REPORT INFORMATION
  Report Type: Spontaneous
  Country: US (occurrence: US)
  Receive Date: 20140603
  Receipt Date: 20140603
  Transmission Date: 20141212
  Serious: No
  Sender: FDA-Public Use
  Company Number: US-009507513-1405USA009024

PATIENT
  Sex: Female

DRUGS (1)
  1. LIPTRUZET [Suspect]
     Route: 048

REACTIONS (3)
  - Drug dose omission [Unknown]
  - Product packaging issue [Unknown]
  - No adverse event [Unknown]
